FAERS Safety Report 6214595-9 (Version None)
Quarter: 2009Q2

REPORT INFORMATION
  Report Type: 
  Country: None (occurrence: None)
  Receive Date: 20090604
  Receipt Date: 20090522
  Transmission Date: 20091009
  Serious: Yes (Other)
  Sender: FDA-Public Use
  Company Number: ZA-PFIZER INC-2009219975

PATIENT

DRUGS (1)
  1. GEODON [Suspect]
     Indication: PERSONALITY DISORDER
     Dosage: UNIT DOSE: UNK; FREQUENCY: UNK, UNK;

REACTIONS (1)
  - HALLUCINATION [None]
